FAERS Safety Report 5893642-8 (Version None)
Quarter: 2008Q3

REPORT INFORMATION
  Report Type: 
  Country: None (occurrence: None)
  Receive Date: 20080923
  Receipt Date: 20070928
  Transmission Date: 20090109
  Serious: No
  Sender: FDA-Public Use
  Company Number: US-ASTRAZENECA-2007UW22778

PATIENT
  Age: 52 Year
  Sex: Female

DRUGS (1)
  1. SEROQUEL [Suspect]
     Indication: BIPOLAR DISORDER
     Route: 048
     Dates: start: 20070928

REACTIONS (5)
  - DIZZINESS [None]
  - DRY MOUTH [None]
  - FEELING ABNORMAL [None]
  - PALPITATIONS [None]
  - THIRST [None]
